FAERS Safety Report 18688247 (Version 61)
Quarter: 2024Q3

REPORT INFORMATION
  Report Type: Report from Study
  Country: US (occurrence: US)
  Receive Date: 20201231
  Receipt Date: 20240828
  Transmission Date: 20241017
  Serious: Yes (Hospitalization, Other)
  Sender: TAKEDA
  Company Number: US-TAKEDA-US202009233

PATIENT
  Age: 62 Year
  Sex: Female

DRUGS (3)
  1. HUMAN IMMUNOGLOBULIN G [Suspect]
     Active Substance: HUMAN IMMUNOGLOBULIN G
     Indication: Immunodeficiency common variable
     Dosage: 50 GRAM
     Route: 042
  2. HUMAN IMMUNOGLOBULIN G [Suspect]
     Active Substance: HUMAN IMMUNOGLOBULIN G
     Indication: Primary immunodeficiency syndrome
     Dosage: UNK UNK, Q3WEEKS
     Route: 042
  3. HUMAN IMMUNOGLOBULIN G [Suspect]
     Active Substance: HUMAN IMMUNOGLOBULIN G
     Dosage: UNK
     Route: 042

REACTIONS (96)
  - Choking [Recovering/Resolving]
  - Coeliac disease [Unknown]
  - Lung neoplasm malignant [Unknown]
  - Small intestinal perforation [Unknown]
  - Diaphragmatic injury [Unknown]
  - Autoimmune disorder [Unknown]
  - Gluten sensitivity [Unknown]
  - Hypothyroidism [Unknown]
  - Laryngitis fungal [Unknown]
  - Cataract [Unknown]
  - Pneumonia [Recovering/Resolving]
  - Cerebrovascular accident [Unknown]
  - Illness [Unknown]
  - Feeding disorder [Unknown]
  - Blood beta-D-glucan increased [Unknown]
  - Migraine [Unknown]
  - Fatigue [Unknown]
  - Sleep disorder [Unknown]
  - Post-traumatic stress disorder [Unknown]
  - Multiple allergies [Unknown]
  - Malaise [Unknown]
  - Headache [Unknown]
  - Insurance issue [Unknown]
  - Incorrect drug administration rate [Unknown]
  - Inappropriate schedule of product administration [Unknown]
  - Dysphonia [Unknown]
  - Hernia [Not Recovered/Not Resolved]
  - Chronic obstructive pulmonary disease [Unknown]
  - Muscle atrophy [Unknown]
  - Blood glucose increased [Unknown]
  - Muscle tightness [Unknown]
  - Weight increased [Unknown]
  - Panic attack [Unknown]
  - Secretion discharge [Unknown]
  - Eye disorder [Unknown]
  - Pulmonary mass [Recovering/Resolving]
  - Gastrointestinal disorder [Unknown]
  - Loss of personal independence in daily activities [Unknown]
  - Dry mouth [Unknown]
  - Dry throat [Unknown]
  - Arthropod sting [Unknown]
  - Weight decreased [Unknown]
  - Back injury [Unknown]
  - Fear of injection [Unknown]
  - Tooth infection [Unknown]
  - Productive cough [Unknown]
  - Application site burn [Unknown]
  - Application site exfoliation [Unknown]
  - Aphonia [Unknown]
  - Bronchitis [Unknown]
  - Nasopharyngitis [Not Recovered/Not Resolved]
  - Skin ulcer [Unknown]
  - Skin exfoliation [Unknown]
  - Hypersomnia [Unknown]
  - Tooth loss [Unknown]
  - Respiratory tract congestion [Unknown]
  - Fall [Unknown]
  - Lung neoplasm [Unknown]
  - Cardiac disorder [Unknown]
  - Pharyngeal swelling [Unknown]
  - Joint lock [Unknown]
  - Neck pain [Unknown]
  - Puncture site bruise [Unknown]
  - Urinary tract infection [Not Recovered/Not Resolved]
  - Lung disorder [Unknown]
  - Pharyngitis [Not Recovered/Not Resolved]
  - Gait disturbance [Unknown]
  - Middle ear effusion [Not Recovered/Not Resolved]
  - Product dose omission issue [Unknown]
  - Epistaxis [Unknown]
  - Sinusitis [Unknown]
  - Feeling abnormal [Unknown]
  - Haematoma [Unknown]
  - Influenza [Unknown]
  - Abdominal discomfort [Unknown]
  - Heart rate increased [Unknown]
  - Pain [Unknown]
  - Insomnia [Unknown]
  - Contusion [Unknown]
  - Rhinorrhoea [Unknown]
  - Dysgeusia [Unknown]
  - Asthenia [Unknown]
  - Nasal congestion [Unknown]
  - Anaemia [Unknown]
  - Eye pain [Unknown]
  - Decreased appetite [Unknown]
  - Muscular weakness [Unknown]
  - Oropharyngeal pain [Unknown]
  - Anxiety [Unknown]
  - Hypersensitivity [Unknown]
  - Dyspnoea [Unknown]
  - Cough [Unknown]
  - Tremor [Unknown]
  - Back pain [Not Recovered/Not Resolved]
  - Vomiting [Unknown]
  - Pyrexia [Unknown]

NARRATIVE: CASE EVENT DATE: 20210320
